FAERS Safety Report 14103745 (Version 2)
Quarter: 2017Q4

REPORT INFORMATION
  Report Type: Report from Study
  Country: CO (occurrence: CO)
  Receive Date: 20171018
  Receipt Date: 20171129
  Transmission Date: 20180321
  Serious: Yes (Other)
  Sender: FDA-Public Use
  Company Number: CO-ASTELLAS-2017US042293

PATIENT
  Age: 63 Year
  Sex: Male
  Weight: 64 kg

DRUGS (1)
  1. TACROLIMUS. [Suspect]
     Active Substance: TACROLIMUS
     Indication: RENAL TRANSPLANT
     Dosage: 2 MG (2 CAPSULES OF 1 MG), ONCE DAILY
     Route: 048
     Dates: start: 20101225

REACTIONS (2)
  - Type 2 diabetes mellitus [Unknown]
  - Peripheral artery thrombosis [Unknown]

NARRATIVE: CASE EVENT DATE: 20170611
